FAERS Safety Report 13575470 (Version 1)
Quarter: 2017Q2

REPORT INFORMATION
  Report Type: Spontaneous
  Country: CH (occurrence: CH)
  Receive Date: 20170524
  Receipt Date: 20170524
  Transmission Date: 20170830
  Serious: Yes (Life-Threatening, Hospitalization, Other)
  Sender: FDA-Public Use
  Company Number: CH-MACLEODS PHARMACEUTICALS US LTD-MAC2017005014

PATIENT

DRUGS (3)
  1. LITHIUM. [Suspect]
     Active Substance: LITHIUM
     Indication: BIPOLAR DISORDER
     Dosage: 660 MG, BID
     Route: 065
  2. OLANZAPINE. [Suspect]
     Active Substance: OLANZAPINE
     Indication: BIPOLAR DISORDER
     Dosage: 2.5 MG, TID
     Route: 065
  3. CLOMIPRAMINE [Suspect]
     Active Substance: CLOMIPRAMINE
     Indication: BIPOLAR DISORDER
     Dosage: 150 MG, QD
     Route: 065

REACTIONS (17)
  - Action tremor [Unknown]
  - Parkinsonism [Unknown]
  - Protrusion tongue [Unknown]
  - Posture abnormal [Unknown]
  - Dystonia [Unknown]
  - Neuroleptic malignant syndrome [Unknown]
  - Renal failure [Unknown]
  - Withdrawal syndrome [Unknown]
  - Jaw disorder [Unknown]
  - Confusional state [Unknown]
  - Dyskinesia [Unknown]
  - Pyrexia [Unknown]
  - Bradykinesia [Unknown]
  - Blood creatine phosphokinase increased [Unknown]
  - Oculogyric crisis [Unknown]
  - Stereotypy [Unknown]
  - Hypertonia [Unknown]
